FAERS Safety Report 24154667 (Version 1)
Quarter: 2024Q3

REPORT INFORMATION
  Report Type: Spontaneous
  Country: RU (occurrence: RU)
  Receive Date: 20240731
  Receipt Date: 20240731
  Transmission Date: 20241017
  Serious: Yes (Disabling)
  Sender: SANOFI AVENTIS
  Company Number: RU-SA-SAC20240725000480

PATIENT
  Age: 61 Year
  Sex: Female

DRUGS (2)
  1. METFORMIN HYDROCHLORIDE [Suspect]
     Active Substance: METFORMIN HYDROCHLORIDE
     Indication: Type 2 diabetes mellitus
     Dosage: UNK
     Route: 048
  2. GLYBURIDE [Suspect]
     Active Substance: GLYBURIDE
     Dosage: UNK
     Route: 048

REACTIONS (2)
  - Gait inability [Not Recovered/Not Resolved]
  - Blood glucose decreased [Not Recovered/Not Resolved]

NARRATIVE: CASE EVENT DATE: 20240101
